FAERS Safety Report 14838138 (Version 1)
Quarter: 2018Q2

REPORT INFORMATION
  Report Type: Spontaneous
  Country: JP (occurrence: JP)
  Receive Date: 20180502
  Receipt Date: 20180502
  Transmission Date: 20180711
  Serious: Yes (Hospitalization)
  Sender: FDA-Public Use
  Company Number: JP-MYLANLABS-2018M1029911

PATIENT
  Age: 61 Year
  Sex: Female

DRUGS (4)
  1. TACROLIMUS. [Suspect]
     Active Substance: TACROLIMUS
     Dosage: 3MG AND DECREASED TO 2.4MG
     Route: 065
  2. PREDNISOLONE. [Concomitant]
     Active Substance: PREDNISOLONE
     Indication: IDIOPATHIC INTERSTITIAL PNEUMONIA
     Route: 048
     Dates: start: 201608
  3. TACROLIMUS. [Suspect]
     Active Substance: TACROLIMUS
     Indication: IDIOPATHIC INTERSTITIAL PNEUMONIA
     Dosage: AND INCREASED
     Route: 065
  4. CYCLOPHOSPHAMIDE. [Concomitant]
     Active Substance: CYCLOPHOSPHAMIDE
     Indication: IDIOPATHIC INTERSTITIAL PNEUMONIA
     Dosage: 840MG (500MG/MM2)
     Route: 042

REACTIONS (1)
  - Nephrotic syndrome [Recovering/Resolving]
